FAERS Safety Report 19280117 (Version 1)
Quarter: 2021Q2

REPORT INFORMATION
  Report Type: Spontaneous
  Country: GB (occurrence: GB)
  Receive Date: 20210520
  Receipt Date: 20210520
  Transmission Date: 20210717
  Serious: Yes (Hospitalization, Other)
  Sender: FDA-Public Use
  Company Number: GB-ACCORD-225358

PATIENT
  Age: 30 Year

DRUGS (12)
  1. URSO [Concomitant]
     Active Substance: URSODIOL
  2. TEZACAFTOR/IVACAFTOR/ELEXACAFTOR [Suspect]
     Active Substance: ELEXACAFTOR\IVACAFTOR\TEZACAFTOR
     Indication: CYSTIC FIBROSIS
     Route: 048
     Dates: end: 20201017
  3. MEROPENEM. [Concomitant]
     Active Substance: MEROPENEM
  4. OMEPRAZOLE. [Concomitant]
     Active Substance: OMEPRAZOLE
  5. DORNASE ALFA. [Concomitant]
     Active Substance: DORNASE ALFA
  6. FLIXONASE [Concomitant]
     Active Substance: FLUTICASONE PROPIONATE
  7. SALBUTAMOL [Concomitant]
     Active Substance: ALBUTEROL
  8. AMITRIPTYLINE [Suspect]
     Active Substance: AMITRIPTYLINE
     Indication: HEMIPLEGIC MIGRAINE
     Route: 065
  9. CREON [Concomitant]
     Active Substance: PANCRELIPASE AMYLASE\PANCRELIPASE LIPASE\PANCRELIPASE PROTEASE
  10. IVACAFTOR [Suspect]
     Active Substance: IVACAFTOR
     Indication: CYSTIC FIBROSIS
     Route: 048
     Dates: end: 20201017
  11. SODIUM CHLORIDE. [Concomitant]
     Active Substance: SODIUM CHLORIDE
  12. KAFTRIO [Suspect]
     Active Substance: ELEXACAFTOR\IVACAFTOR\TEZACAFTOR
     Indication: PRODUCT USED FOR UNKNOWN INDICATION
     Dosage: 1 TABLET KAFTRIO AT NIGHT ONLY
     Route: 048

REACTIONS (2)
  - Nightmare [Unknown]
  - Hemiplegic migraine [Unknown]

NARRATIVE: CASE EVENT DATE: 20201002
